FAERS Safety Report 24852703 (Version 2)
Quarter: 2025Q1

REPORT INFORMATION
  Report Type: Spontaneous
  Country: DE (occurrence: DE)
  Receive Date: 20250116
  Receipt Date: 20250210
  Transmission Date: 20250409
  Serious: Yes (Other)
  Sender: MYLAN
  Company Number: DE-EMB-M202306111-1

PATIENT
  Sex: Female
  Weight: 80 kg

DRUGS (3)
  1. CANDESARTAN [Suspect]
     Active Substance: CANDESARTAN
     Indication: Renal failure
     Dosage: 32 MILLIGRAM, QD
     Route: 048
     Dates: start: 202302, end: 202306
  2. METOPROLOL [Concomitant]
     Active Substance: METOPROLOL
     Indication: Renal failure
     Dosage: 47.5 MILLIGRAM, QOD (PROBABLY LONGER, THE ENTIRE PREGNANCY)
     Route: 048
     Dates: start: 202302, end: 202307
  3. INDAPAMIDE [Concomitant]
     Active Substance: INDAPAMIDE
     Indication: Renal failure
     Dosage: 1.5 MILLIGRAM, QD
     Route: 048
     Dates: start: 202302, end: 202306

REACTIONS (5)
  - Ultrasound antenatal screen abnormal [Unknown]
  - Oligohydramnios [Recovered/Resolved]
  - Drug exposure before pregnancy [Unknown]
  - Exposure during pregnancy [Unknown]
  - Off label use [Unknown]

NARRATIVE: CASE EVENT DATE: 20230201
